FAERS Safety Report 7763897-3 (Version None)
Quarter: 2011Q3

REPORT INFORMATION
  Report Type: 
  Country: None (occurrence: None)
  Receive Date: 20110919
  Receipt Date: 20110902
  Transmission Date: 20111222
  Serious: Yes (Death)
  Sender: FDA-Public Use
  Company Number: 2010BI021565

PATIENT
  Age: 67 Year
  Sex: Female

DRUGS (13)
  1. RITUXIMAB (RITUXIMAB) [Suspect]
     Indication: NON-HODGKIN'S LYMPHOMA
     Dates: start: 20061225
  2. DOXORUBICIN HCL [Concomitant]
  3. VINCRISTINE SULFATE [Concomitant]
  4. MELPHALAN HYDROCHLORIDE [Concomitant]
  5. CYTARABINE [Concomitant]
  6. RITUXIMAB (RITUXIMAB) [Suspect]
     Indication: NON-HODGKIN'S LYMPHOMA
     Dosage: 250MG/M2; 1X;IV
     Route: 042
     Dates: start: 20040902, end: 20040902
  7. RITUXIMAB (RITUXIMAB) [Suspect]
     Indication: NON-HODGKIN'S LYMPHOMA
     Dosage: 250MG/M2; 1X; IV
     Route: 042
     Dates: start: 20040819, end: 20040902
  8. ZEVALIN [Suspect]
     Indication: NON-HODGKIN'S LYMPHOMA
     Dosage: ; 1X; IV
     Route: 042
     Dates: start: 20040902, end: 20040902
  9. PREDNISONE [Concomitant]
  10. ETOPOSIDE [Concomitant]
  11. RITUXIMAB (RITUXIMAB) [Suspect]
     Indication: NON-HODGKIN'S LYMPHOMA
     Dates: start: 20060717
  12. CARMUSTINE [Concomitant]
  13. CYCLOPOHOSPHAMIDE [Concomitant]

REACTIONS (5)
  - MYELODYSPLASTIC SYNDROME [None]
  - PANCYTOPENIA [None]
  - SUBDURAL HAEMATOMA [None]
  - BONE MARROW FAILURE [None]
  - EPISTAXIS [None]
